FAERS Safety Report 4715579-X (Version None)
Quarter: 2005Q3

REPORT INFORMATION
  Report Type: 
  Country: None (occurrence: None)
  Receive Date: 20050713
  Receipt Date: 20050331
  Transmission Date: 20060218
  Serious: Yes (Death)
  Sender: FDA-Public Use
  Company Number: 2005FR-00085

PATIENT
  Age: 70 Year
  Sex: Male

DRUGS (4)
  1. FLUOXETINE [Suspect]
     Indication: DEPRESSION
     Dosage: 20MG, ORAL
     Route: 048
     Dates: start: 20041026
  2. EFFEXOR [Concomitant]
  3. FUROSEMIDE [Concomitant]
  4. AMIODARONE [Concomitant]

REACTIONS (1)
  - COMPLETED SUICIDE [None]
